FAERS Safety Report 10082889 (Version 1)
Quarter: 2014Q2

REPORT INFORMATION
  Report Type: Spontaneous
  Country: FR (occurrence: FR)
  Receive Date: 20140417
  Receipt Date: 20140417
  Transmission Date: 20141212
  Serious: Yes (Hospitalization, Disabling)
  Sender: FDA-Public Use
  Company Number: FR-ROCHE-1384903

PATIENT
  Age: 70 Year
  Sex: Female
  Weight: 79.7 kg

DRUGS (9)
  1. LUCENTIS [Suspect]
     Indication: DIABETIC RETINOPATHY
     Dosage: IN RIGHT EYE
     Route: 050
     Dates: start: 20140107
  2. METFORMIN [Concomitant]
     Route: 065
  3. AMAREL [Concomitant]
  4. XELEVIA [Concomitant]
  5. COAPROVEL [Concomitant]
  6. AMLOR [Concomitant]
  7. ALLOPURINOL [Concomitant]
     Route: 065
  8. LEVOTHYROX [Concomitant]
  9. OMEPRAZOLE [Concomitant]

REACTIONS (1)
  - Cerebral infarction [Not Recovered/Not Resolved]
